FAERS Safety Report 9560019 (Version 3)
Quarter: 2013Q4

REPORT INFORMATION
  Report Type: Spontaneous
  Country: US (occurrence: US)
  Receive Date: 20130927
  Receipt Date: 20131226
  Transmission Date: 20140711
  Serious: No
  Sender: FDA-Public Use
  Company Number: US-PFIZER INC-2013277276

PATIENT
  Age: 58 Year
  Sex: Female

DRUGS (1)
  1. LYRICA [Suspect]
     Indication: FIBROMYALGIA
     Dosage: UNK
     Route: 048
     Dates: start: 201008, end: 20111207

REACTIONS (8)
  - Pain [Unknown]
  - Weight increased [Recovered/Resolved]
  - Activities of daily living impaired [Unknown]
  - Depression [Unknown]
  - Arthropathy [Unknown]
  - Stress [Unknown]
  - Fatigue [Recovered/Resolved]
  - Nausea [Recovered/Resolved]
